FAERS Safety Report 7036897-9 (Version None)
Quarter: 2010Q4

REPORT INFORMATION
  Report Type: 
  Country: None (occurrence: None)
  Receive Date: 20101011
  Receipt Date: 20101007
  Transmission Date: 20110411
  Serious: Yes (Life-Threatening)
  Sender: FDA-Public Use
  Company Number: FR-ASTRAZENECA-2010SE47331

PATIENT
  Age: 20987 Day
  Sex: Male

DRUGS (3)
  1. ATACAND [Suspect]
     Indication: HYPERTENSION
     Route: 048
  2. LARGACTIL [Suspect]
     Indication: AGITATION
     Route: 042
     Dates: start: 20100707, end: 20100707
  3. ALEPSAL [Suspect]
     Indication: EPILEPSY
     Route: 048

REACTIONS (1)
  - HYPOTENSION [None]
